FAERS Safety Report 23340299 (Version 1)
Quarter: 2023Q4

REPORT INFORMATION
  Report Type: Report from Study
  Country: US (occurrence: US)
  Receive Date: 20231227
  Receipt Date: 20231227
  Transmission Date: 20240110
  Serious: Yes (Other)
  Sender: FDA-Public Use
  Company Number: US-JNJFOC-20231261313

PATIENT

DRUGS (7)
  1. DARATUMUMAB [Suspect]
     Active Substance: DARATUMUMAB
     Indication: Plasma cell myeloma refractory
     Dosage: 16MG/KG IV WEEKLY X 8 DOSES
     Route: 042
  2. DARATUMUMAB [Suspect]
     Active Substance: DARATUMUMAB
     Dosage: 16MG/KG IV BIWEEKLY X 8 DOSES
     Route: 042
  3. DARATUMUMAB [Suspect]
     Active Substance: DARATUMUMAB
     Dosage: 16MG/KG IV MONTHLY
     Route: 042
  4. DARATUMUMAB [Suspect]
     Active Substance: DARATUMUMAB
     Route: 058
  5. IXAZOMIB [Suspect]
     Active Substance: IXAZOMIB
     Indication: Plasma cell myeloma refractory
     Dosage: 4 MG ORALLY ON DAYS 1, 8, 15
     Route: 048
  6. POMALIDOMIDE [Suspect]
     Active Substance: POMALIDOMIDE
     Indication: Plasma cell myeloma refractory
     Dosage: 4 MG ORALLY ON DAYS 1-21
     Route: 048
  7. DEXAMETHASONE [Suspect]
     Active Substance: DEXAMETHASONE
     Indication: Plasma cell myeloma refractory
     Dosage: 20-40 MG WEEKLY ON A 28-DAY CYCLE
     Route: 065

REACTIONS (12)
  - Neutropenia [Unknown]
  - Thrombocytopenia [Unknown]
  - Infection [Unknown]
  - Lymphopenia [Unknown]
  - Infusion related reaction [Unknown]
  - Electrolyte imbalance [Unknown]
  - Leukopenia [Unknown]
  - Thrombosis [Unknown]
  - Febrile neutropenia [Unknown]
  - Respiratory disorder [Unknown]
  - Mental disorder [Unknown]
  - Off label use [Unknown]
